FAERS Safety Report 12473103 (Version 1)
Quarter: 2016Q2

REPORT INFORMATION
  Report Type: Report from Study
  Country: CA (occurrence: CA)
  Receive Date: 20160616
  Receipt Date: 20160616
  Transmission Date: 20160815
  Serious: Yes (Other)
  Sender: FDA-Public Use
  Company Number: CA-UCBSA-2016015799

PATIENT
  Age: 24 Year
  Sex: Female
  Weight: 62 kg

DRUGS (2)
  1. CERTOLIZUMAB PEGOL RA [Suspect]
     Active Substance: CERTOLIZUMAB PEGOL
     Indication: RHEUMATOID ARTHRITIS
     Dosage: 400 MG, EV 2 WEEKS(QOW)X3
     Route: 058
     Dates: start: 20150622, end: 20150720
  2. CERTOLIZUMAB PEGOL RA [Suspect]
     Active Substance: CERTOLIZUMAB PEGOL
     Dosage: 200 MG, EV 2 WEEKS(QOW)
     Route: 058
     Dates: start: 20150803

REACTIONS (3)
  - Pregnancy [Unknown]
  - Sinusitis [Unknown]
  - Viral infection [Unknown]

NARRATIVE: CASE EVENT DATE: 20160322
